FAERS Safety Report 6013111-4 (Version None)
Quarter: 2008Q4

REPORT INFORMATION
  Report Type: 
  Country: None (occurrence: None)
  Receive Date: 20081219
  Receipt Date: 20081212
  Transmission Date: 20090506
  Serious: Yes (Other)
  Sender: FDA-Public Use
  Company Number: US-BIOGENIDEC-2008BI031893

PATIENT
  Age: 39 Year
  Sex: Male

DRUGS (2)
  1. AVONEX [Suspect]
     Indication: MULTIPLE SCLEROSIS
     Route: 030
     Dates: start: 19960101, end: 19970101
  2. AVONEX [Suspect]
     Route: 030
     Dates: start: 20080227

REACTIONS (6)
  - BACK INJURY [None]
  - CONCUSSION [None]
  - CONTUSION [None]
  - LIMB INJURY [None]
  - NECK INJURY [None]
  - ROAD TRAFFIC ACCIDENT [None]
